FAERS Safety Report 9065831 (Version 1)
Quarter: 2013Q1

REPORT INFORMATION
  Report Type: Report from Study
  Country: US (occurrence: US)
  Receive Date: 20130130
  Receipt Date: 20130130
  Transmission Date: 20140127
  Serious: No
  Sender: FDA-Public Use
  Company Number: US-ABBOTT-12P-163-0974959-00

PATIENT
  Age: 24 Year
  Sex: Female

DRUGS (5)
  1. HUMIRA [Suspect]
     Indication: CROHN^S DISEASE
     Dosage: LOADING DOSE DAY 1
     Route: 058
     Dates: start: 20120816
  2. HUMIRA [Suspect]
     Dosage: DAY TWO
     Route: 058
  3. HUMIRA [Suspect]
     Route: 058
  4. AMBIEN [Concomitant]
     Indication: INSOMNIA
  5. TYLENOL [Concomitant]
     Indication: PAIN

REACTIONS (2)
  - Injection site pain [Unknown]
  - Injection site erythema [Unknown]
